FAERS Safety Report 8083305-5 (Version None)
Quarter: 2012Q1

REPORT INFORMATION
  Report Type: 
  Country: None (occurrence: None)
  Receive Date: 20120127
  Receipt Date: 20110330
  Transmission Date: 20120608
  Serious: No
  Sender: FDA-Public Use
  Company Number: US-ABBOTT-11P-163-0710616-00

PATIENT
  Sex: Female

DRUGS (8)
  1. HYDROCODONE BITARTRATE [Concomitant]
     Indication: ARTHRALGIA
  2. HUMIRA [Suspect]
     Indication: RHEUMATOID ARTHRITIS
     Dates: start: 20101101
  3. PREDNISONE TAB [Concomitant]
     Indication: RHEUMATOID ARTHRITIS
  4. OXYCONTIN [Concomitant]
     Indication: ARTHRALGIA
  5. NAPROXIN [Concomitant]
     Indication: PAIN
  6. VITAMIN B-12 [Concomitant]
     Indication: PERNICIOUS ANAEMIA
  7. VITAMIN TAB [Concomitant]
     Indication: VITAMIN SUPPLEMENTATION
  8. LAVOXIL [Concomitant]
     Indication: HYPOTHYROIDISM

REACTIONS (9)
  - GAIT DISTURBANCE [None]
  - WRONG TECHNIQUE IN DRUG USAGE PROCESS [None]
  - INJECTION SITE HAEMATOMA [None]
  - HYPOKINESIA [None]
  - OEDEMA PERIPHERAL [None]
  - INCORRECT DOSE ADMINISTERED [None]
  - INJECTION SITE PAIN [None]
  - DRUG DOSE OMISSION [None]
  - DEVICE MALFUNCTION [None]
